FAERS Safety Report 25720908 (Version 2)
Quarter: 2025Q3

REPORT INFORMATION
  Report Type: Report from Study
  Country: JP (occurrence: JP)
  Receive Date: 20250825
  Receipt Date: 20250919
  Transmission Date: 20251020
  Serious: Yes (Death, Life-Threatening, Hospitalization)
  Sender: TAIHO ONCOLOGY INC
  Company Number: JP-TAIHOP-2025-002569

PATIENT
  Age: 81 Year
  Sex: Male
  Weight: 56.05 kg

DRUGS (2)
  1. LYTGOBI [Suspect]
     Active Substance: FUTIBATINIB
     Indication: Bile duct cancer
     Route: 048
     Dates: start: 20250127, end: 20250203
  2. LYTGOBI [Suspect]
     Active Substance: FUTIBATINIB
     Dosage: DATE OF LAST ADMINISTRATION: 09/MAR/2025
     Route: 048
     Dates: start: 20250303, end: 20250310

REACTIONS (8)
  - Renal failure [Fatal]
  - Multiple organ dysfunction syndrome [Fatal]
  - Renal disorder [Recovered/Resolved]
  - Vomiting [Unknown]
  - Diarrhoea [Unknown]
  - Dehydration [Unknown]
  - Hyperphosphataemia [Recovered/Resolved]
  - Nausea [Recovered/Resolved]

NARRATIVE: CASE EVENT DATE: 20250203
